FAERS Safety Report 6362065-X (Version None)
Quarter: 2009Q3

REPORT INFORMATION
  Report Type: 
  Country: None (occurrence: None)
  Receive Date: 20090918
  Receipt Date: 20090911
  Transmission Date: 20100115
  Serious: Yes (Hospitalization, Other)
  Sender: FDA-Public Use
  Company Number: PHHY2009BR39209

PATIENT
  Sex: Female

DRUGS (9)
  1. GALVUS MET COMBIPACK [Suspect]
     Indication: DIABETES MELLITUS
     Dosage: 1 DF(850/50 MG) 1 TABLET IN THE MORNING AND 1 AT NIGHT
     Route: 048
     Dates: start: 20070101
  2. GALVUS MET COMBIPACK [Suspect]
     Dosage: 500/50 MG, 1 IN THE MORNING AND AT NIGHT.
     Route: 048
  3. DIOVAN [Suspect]
     Indication: CARDIAC DISORDER
     Dosage: 80 MG, QD
     Route: 048
  4. BAMIFIX [Concomitant]
     Indication: CARDIAC DISORDER
     Dosage: 1 DF, Q12H
     Route: 048
  5. LASIX [Concomitant]
     Indication: CARDIAC DISORDER
     Dosage: 1 TABLET PER DAY
     Route: 048
  6. VASCLIIN [Concomitant]
     Indication: CARDIAC DISORDER
     Dosage: 1 TABLET PER DAY
     Route: 048
  7. ALDACTONE [Concomitant]
     Indication: CARDIAC DISORDER
     Dosage: 1 TABLET A DAY
     Route: 048
  8. AMARYL [Concomitant]
     Indication: DIABETES MELLITUS
     Dosage: 1 TABLET A DAY
     Route: 048
  9. BISOPROLOL FUMARATE [Concomitant]
     Indication: CARDIAC DISORDER
     Dosage: 1 TABLET A DAY
     Route: 048

REACTIONS (2)
  - DIABETES MELLITUS INADEQUATE CONTROL [None]
  - MYOCARDIAL INFARCTION [None]
